FAERS Safety Report 18338328 (Version 2)
Quarter: 2020Q4

REPORT INFORMATION
  Report Type: Report from Study
  Country: DE (occurrence: DE)
  Receive Date: 20201002
  Receipt Date: 20201221
  Transmission Date: 20210113
  Serious: Yes (Other)
  Sender: FDA-Public Use
  Company Number: DE-MYLANLABS-2020M1082601

PATIENT
  Age: 59 Year
  Sex: Male

DRUGS (8)
  1. SPINRAZA [Suspect]
     Active Substance: NUSINERSEN
     Dosage: 12 MILLIGRAM 4 MONTHLY
     Route: 037
  2. FINASTERIDE. [Concomitant]
     Active Substance: FINASTERIDE
     Indication: PROSTATIC DISORDER
     Dosage: 1 MILLIGRAM
     Route: 065
  3. CAPROS [Concomitant]
     Indication: PAIN
     Dosage: 10 MILLIGRAM
     Route: 065
  4. RAMIPRIL. [Suspect]
     Active Substance: RAMIPRIL
     Indication: BLOOD PRESSURE INCREASED
     Dosage: UNK
     Route: 065
     Dates: start: 202003, end: 202003
  5. AMITRIPTYLINE [Concomitant]
     Active Substance: AMITRIPTYLINE
     Indication: PAIN
     Dosage: 75 MILLIGRAM
     Route: 065
  6. METOPROLOL. [Suspect]
     Active Substance: METOPROLOL
     Indication: BLOOD PRESSURE INCREASED
     Dosage: START WITH A HALF TABLET, INCREASED TO TABLET, THEREAFTER TO 2 TABLETS
     Route: 065
     Dates: start: 2020, end: 202007
  7. OMEPRAZOLE. [Concomitant]
     Active Substance: OMEPRAZOLE
     Indication: GASTRITIS
     Dosage: 20 MILLIGRAM
     Route: 065
  8. SPINRAZA [Suspect]
     Active Substance: NUSINERSEN
     Indication: SPINAL MUSCULAR ATROPHY
     Dosage: 12 MILLIGRAM
     Route: 037
     Dates: start: 20190527

REACTIONS (7)
  - Post lumbar puncture syndrome [Recovered/Resolved]
  - Headache [Recovered/Resolved]
  - Drug ineffective [Recovered/Resolved]
  - Fatigue [Recovered/Resolved]
  - Photophobia [Recovered/Resolved]
  - Blood pressure increased [Not Recovered/Not Resolved]
  - Dizziness [Recovered/Resolved]

NARRATIVE: CASE EVENT DATE: 2020
